FAERS Safety Report 19089236 (Version 2)
Quarter: 2021Q2

REPORT INFORMATION
  Report Type: Report from Study
  Country: UG (occurrence: UG)
  Receive Date: 20210403
  Receipt Date: 20210514
  Transmission Date: 20210717
  Serious: Yes (Life-Threatening, Hospitalization, Other)
  Sender: FDA-Public Use
  Company Number: UG-CIPLA LTD.-2021UG02432

PATIENT

DRUGS (2)
  1. ABACAVIR/LAMIVUDINE [Suspect]
     Active Substance: ABACAVIR\LAMIVUDINE
     Indication: HIV INFECTION
     Dosage: 2.5 DOSAGE FORM, BID (150MG/75MG BID DAILY)
     Route: 048
     Dates: start: 20170127, end: 20181128
  2. LOPINAVIR/RITONAVIR [Suspect]
     Active Substance: LOPINAVIR\RITONAVIR
     Indication: HIV INFECTION
     Dosage: 5 DOSAGE FORM, BID (200MG/50MG BID DAILY)
     Route: 048
     Dates: start: 20170127, end: 20181128

REACTIONS (3)
  - Measles [Recovered/Resolved]
  - Pneumonia [Recovered/Resolved]
  - Dysentery [Recovered/Resolved]

NARRATIVE: CASE EVENT DATE: 20180907
